FAERS Safety Report 5934735-6 (Version None)
Quarter: 2008Q4

REPORT INFORMATION
  Report Type: 
  Country: None (occurrence: None)
  Receive Date: 20081029
  Receipt Date: 20081028
  Transmission Date: 20090506
  Serious: Yes (Hospitalization)
  Sender: FDA-Public Use
  Company Number: CA-B.I. PHARMACEUTICALS,INC./RIDGEFIELD-2008-CN-00138CN

PATIENT
  Sex: Male

DRUGS (7)
  1. FLOMAX [Suspect]
     Indication: BENIGN PROSTATIC HYPERPLASIA
     Dates: start: 20070123, end: 20080213
  2. APO-SOTALOL [Concomitant]
     Dosage: 320MG
  3. COZAAR [Concomitant]
     Dosage: 100MG
  4. COUMADIN [Concomitant]
     Dosage: 2MG - 5MG A DAY
  5. NORVASC [Concomitant]
     Dosage: 5MG
  6. GEN-FENOFIBRATE MICRO [Concomitant]
     Dosage: 200MG
  7. PROSCAR [Concomitant]
     Dosage: 5MG

REACTIONS (4)
  - ATRIAL FIBRILLATION [None]
  - MALAISE [None]
  - NAUSEA [None]
  - RASH [None]
